FAERS Safety Report 6841834-3 (Version None)
Quarter: 2010Q3

REPORT INFORMATION
  Report Type: 
  Country: None (occurrence: None)
  Receive Date: 20100714
  Receipt Date: 20070715
  Transmission Date: 20110219
  Serious: No
  Sender: FDA-Public Use
  Company Number: US-PFIZER INC-2007060091

PATIENT
  Sex: Female
  Weight: 59 kg

DRUGS (1)
  1. CHANTIX [Suspect]
     Indication: SMOKING CESSATION THERAPY
     Dates: start: 20070701

REACTIONS (13)
  - ALANINE AMINOTRANSFERASE INCREASED [None]
  - ASPARTATE AMINOTRANSFERASE INCREASED [None]
  - CHILLS [None]
  - DIZZINESS [None]
  - DRUG DOSE OMISSION [None]
  - DYSGEUSIA [None]
  - HYPERHIDROSIS [None]
  - HYPERMETROPIA [None]
  - MALAISE [None]
  - MENSTRUATION IRREGULAR [None]
  - NAUSEA [None]
  - THIRST [None]
  - VISION BLURRED [None]
